FAERS Safety Report 6578652-X (Version None)
Quarter: 2010Q1

REPORT INFORMATION
  Report Type: 
  Country: None (occurrence: None)
  Receive Date: 20100211
  Receipt Date: 20100205
  Transmission Date: 20100710
  Serious: Yes (Death, Hospitalization)
  Sender: FDA-Public Use
  Company Number: NL-AMGEN-US383710

PATIENT
  Age: 76 Year
  Sex: Male
  Weight: 100 kg

DRUGS (9)
  1. ENBREL [Suspect]
     Indication: RHEUMATOID ARTHRITIS
     Route: 058
     Dates: start: 20090316, end: 20091201
  2. METHOTREXATE [Suspect]
     Indication: RHEUMATOID ARTHRITIS
     Route: 048
     Dates: start: 20070701, end: 20091201
  3. PREDNISOLON [Concomitant]
     Indication: RHEUMATOID ARTHRITIS
     Dosage: 7.5 MG
     Route: 014
  4. CAPTOPRIL [Concomitant]
     Route: 048
  5. CALCICHEW-D3 [Concomitant]
     Dosage: 500 MG/400 E
     Route: 048
  6. ZALDIAR [Concomitant]
     Route: 065
  7. SULFASALAZINE [Concomitant]
     Route: 065
  8. AERIUS [Concomitant]
     Route: 065
  9. GLIMEPIRIDE [Concomitant]
     Route: 065

REACTIONS (6)
  - CONDITION AGGRAVATED [None]
  - DRUG TOXICITY [None]
  - DYSPNOEA [None]
  - INTERSTITIAL LUNG DISEASE [None]
  - PULMONARY FIBROSIS [None]
  - PYREXIA [None]
